FAERS Safety Report 5963326-6 (Version None)
Quarter: 2008Q4

REPORT INFORMATION
  Report Type: 
  Country: None (occurrence: None)
  Receive Date: 20081124
  Receipt Date: 20081117
  Transmission Date: 20090506
  Serious: Yes (Hospitalization)
  Sender: FDA-Public Use
  Company Number: A0731246A

PATIENT
  Age: 42 Year
  Sex: Male
  Weight: 68.2 kg

DRUGS (23)
  1. AVANDIA [Suspect]
     Dosage: 4MG TWICE PER DAY
     Route: 048
     Dates: start: 20020429, end: 20051201
  2. SKELAXIN [Concomitant]
  3. METOCLOPRAMIDE [Concomitant]
  4. RANITIDINE [Concomitant]
  5. PRILOSEC [Concomitant]
  6. PREVACID [Concomitant]
  7. SULAR [Concomitant]
  8. QUINAPRIL [Concomitant]
  9. ATENOLOL [Concomitant]
  10. NORVASC [Concomitant]
  11. ACCUPRIL [Concomitant]
  12. ZOCOR [Concomitant]
  13. LIPITOR [Concomitant]
  14. CELEBREX [Concomitant]
  15. HYDROCHLOROTHIAZIDE [Concomitant]
  16. COREG [Concomitant]
  17. NOVOLOG [Concomitant]
  18. GLUCOTROL XL [Concomitant]
  19. DIABETA [Concomitant]
  20. STARLIX [Concomitant]
  21. FORTAMET [Concomitant]
  22. METFORMIN HCL [Concomitant]
  23. GLUCOPHAGE [Concomitant]

REACTIONS (3)
  - INJURY [None]
  - MYOCARDIAL INFARCTION [None]
  - PAIN [None]
